FAERS Safety Report 10791892 (Version 1)
Quarter: 2015Q1

REPORT INFORMATION
  Report Type: Spontaneous
  Country: AT (occurrence: None)
  Receive Date: 20150211
  Receipt Date: 20150211
  Transmission Date: 20150721
  Serious: No
  Sender: FDA-Public Use
  Company Number: AT-LHC-2015015

PATIENT
  Age: 83 Year
  Sex: Male

DRUGS (3)
  1. SLEEPING PILLS [Concomitant]
     Active Substance: UNSPECIFIED INGREDIENT
  2. INSULIN [Concomitant]
     Active Substance: INSULIN NOS
  3. CONOXIA, MEDIZINISCHES GAS (GAS FOR INHALATION) (VERUM) [Suspect]
     Active Substance: OXYGEN
     Indication: CORONARY ARTERY DISEASE
     Dosage: THREE HOURS A DAY
     Route: 055
     Dates: start: 20150109

REACTIONS (8)
  - Blood glucose fluctuation [None]
  - Nausea [None]
  - Panic disorder [None]
  - General physical health deterioration [None]
  - Lung disorder [None]
  - Poor quality sleep [None]
  - Fear of death [None]
  - Depression [None]

NARRATIVE: CASE EVENT DATE: 20150128
